FAERS Safety Report 9993539 (Version 2)
Quarter: 2014Q2

REPORT INFORMATION
  Report Type: Spontaneous
  Country: JP (occurrence: JP)
  Receive Date: 20140310
  Receipt Date: 20140424
  Transmission Date: 20141212
  Serious: Yes (Hospitalization)
  Sender: FDA-Public Use
  Company Number: JP-PFIZER INC-2014060535

PATIENT
  Age: 8 Decade
  Sex: Male

DRUGS (10)
  1. ATENOLOL [Suspect]
     Dosage: UNK
  2. CILOSTAZOL [Suspect]
     Indication: CEREBROVASCULAR DISORDER
     Dosage: 200 MG, DAILY
  3. CILOSTAZOL [Suspect]
     Dosage: UNK
  4. DISOPYRAMIDE [Suspect]
     Indication: ATRIAL FIBRILLATION
     Dosage: 300 MG, DAILY
  5. CLOPIDOGREL SULFATE [Suspect]
     Indication: LACUNAR INFARCTION
     Dosage: 75 MG, DAILY
  6. CLOPIDOGREL SULFATE [Suspect]
     Dosage: 75 MG, DAILY
  7. VERAPAMIL HYDROCHLORIDE [Suspect]
     Dosage: UNK
  8. CEFCAPENE PIVOXIL HYDROCHLORIDE [Concomitant]
     Dosage: UNK
  9. CETIRIZINE HYDROCHLORIDE [Concomitant]
     Dosage: UNK
  10. EPINASTINE HYDROCHLORIDE [Concomitant]
     Dosage: UNK

REACTIONS (1)
  - Eosinophilic pneumonia [Recovering/Resolving]
